FAERS Safety Report 9592945 (Version 1)
Quarter: 2013Q4

REPORT INFORMATION
  Report Type: Spontaneous
  Country: GB (occurrence: None)
  Receive Date: 20131002
  Receipt Date: 20131002
  Transmission Date: 20140711
  Serious: No
  Sender: FDA-Public Use
  Company Number: 2013GR_BP005002

PATIENT
  Sex: Male
  Weight: 65 kg

DRUGS (2)
  1. FINASTERIDE [Suspect]
     Indication: ALOPECIA
     Dosage: NR (1 MG) ORAL
     Route: 048
     Dates: start: 200709, end: 201209
  2. FINASTERIDE [Suspect]
     Indication: OFF LABEL USE
     Dosage: NR (1 MG) ORAL
     Route: 048
     Dates: start: 200709, end: 201209

REACTIONS (7)
  - Nocturia [None]
  - Pelvic discomfort [None]
  - Sleep disorder [None]
  - Depression [None]
  - Libido decreased [None]
  - Apathy [None]
  - Off label use [None]
